FAERS Safety Report 9934568 (Version 2)
Quarter: 2014Q2

REPORT INFORMATION
  Report Type: Report from Study
  Country: US (occurrence: US)
  Receive Date: 20140228
  Receipt Date: 20140417
  Transmission Date: 20141212
  Serious: Yes (Death)
  Sender: FDA-Public Use
  Company Number: US-JNJFOC-20140215490

PATIENT
  Sex: Male

DRUGS (4)
  1. EXTRA STRENGTH TYLENOL [Suspect]
     Indication: PRODUCT USED FOR UNKNOWN INDICATION
     Dosage: TOTAL: 35 FOR A COUPLE OF WEEKS??8-12 TIMES A DAY
     Route: 065
     Dates: start: 19960117, end: 19960131
  2. CAFFEINE [Concomitant]
     Indication: PRODUCT USED FOR UNKNOWN INDICATION
     Route: 065
  3. CODEINE [Concomitant]
     Indication: PRODUCT USED FOR UNKNOWN INDICATION
     Route: 065
  4. ETHANOL [Concomitant]
     Indication: PRODUCT USED FOR UNKNOWN INDICATION
     Route: 065

REACTIONS (7)
  - Cirrhosis alcoholic [Fatal]
  - Hepatorenal failure [Fatal]
  - Coagulopathy [Fatal]
  - Ascites [Fatal]
  - Hepatic failure [Fatal]
  - Respiratory failure [Fatal]
  - Toxicity to various agents [Fatal]
